FAERS Safety Report 6384532-5 (Version None)
Quarter: 2009Q3

REPORT INFORMATION
  Report Type: 
  Country: None (occurrence: None)
  Receive Date: 20090924
  Receipt Date: 20090219
  Transmission Date: 20100115
  Serious: No
  Sender: FDA-Public Use
  Company Number: US-CVT-090018

PATIENT
  Sex: Female

DRUGS (2)
  1. RANEXA [Suspect]
     Indication: ANGINA PECTORIS
     Dosage: 500 MG, BID, ORAL
     Route: 048
     Dates: start: 20090213
  2. ELAVIL [Suspect]
     Indication: DRUG USE FOR UNKNOWN INDICATION
     Dosage: 75 MG, QD, ORAL
     Route: 048

REACTIONS (6)
  - BALANCE DISORDER [None]
  - DEPRESSED LEVEL OF CONSCIOUSNESS [None]
  - DIZZINESS [None]
  - DRUG INTERACTION [None]
  - OEDEMA PERIPHERAL [None]
  - TREMOR [None]
